FAERS Safety Report 4493934-3 (Version None)
Quarter: 2004Q4

REPORT INFORMATION
  Report Type: 
  Country: None (occurrence: None)
  Receive Date: 20041102
  Receipt Date: 20041014
  Transmission Date: 20050328
  Serious: Yes (Death)
  Sender: FDA-Public Use
  Company Number: 04KOR0232

PATIENT
  Age: 77 Year
  Sex: Male

DRUGS (2)
  1. AGGRASTAT [Suspect]
     Indication: MYOCARDIAL INFARCTION
     Dates: start: 20040706, end: 20040709
  2. AMIODARONE HCL [Concomitant]

REACTIONS (1)
  - CARDIAC FAILURE [None]
